FAERS Safety Report 12357549 (Version 6)
Quarter: 2016Q3

REPORT INFORMATION
  Report Type: Spontaneous
  Country: FR (occurrence: FR)
  Receive Date: 20160512
  Receipt Date: 20160801
  Transmission Date: 20161109
  Serious: Yes (Other)
  Sender: FDA-Public Use
  Company Number: FR-009507513-1605FRA002279

PATIENT
  Age: 28 Year
  Sex: Female
  Weight: 77 kg

DRUGS (3)
  1. NEXPLANON [Suspect]
     Active Substance: ETONOGESTREL
     Dosage: UNK
     Route: 058
     Dates: start: 20151130
  2. NEXPLANON [Suspect]
     Active Substance: ETONOGESTREL
     Indication: CONTRACEPTION
     Dosage: UNK
     Route: 059
     Dates: start: 20121220, end: 20151130
  3. SEROPLEX [Concomitant]
     Active Substance: ESCITALOPRAM OXALATE
     Dosage: UNK

REACTIONS (6)
  - Unintended pregnancy [Recovered/Resolved]
  - Abortion induced [Unknown]
  - Pregnancy with implant contraceptive [Recovered/Resolved]
  - Device difficult to use [Not Recovered/Not Resolved]
  - Complication associated with device [Not Recovered/Not Resolved]
  - Drug dose omission [Unknown]

NARRATIVE: CASE EVENT DATE: 20160308
